FAERS Safety Report 17517725 (Version 1)
Quarter: 2020Q1

REPORT INFORMATION
  Report Type: Spontaneous
  Country: US (occurrence: US)
  Receive Date: 20200309
  Receipt Date: 20200309
  Transmission Date: 20200409
  Serious: Yes (Hospitalization)
  Sender: FDA-Public Use
  Company Number: None

PATIENT
  Age: 60 Year
  Sex: Female
  Weight: 81 kg

DRUGS (13)
  1. CYCLOPENTOLATE. [Concomitant]
     Active Substance: CYCLOPENTOLATE
  2. AMLODIPINE [Concomitant]
     Active Substance: AMLODIPINE BESYLATE
  3. FLONASE [Concomitant]
     Active Substance: FLUTICASONE PROPIONATE
  4. SYNTHROID [Concomitant]
     Active Substance: LEVOTHYROXINE SODIUM
  5. TRADJENTA [Concomitant]
     Active Substance: LINAGLIPTIN
  6. ZYRTEC [Concomitant]
     Active Substance: CETIRIZINE HYDROCHLORIDE
  7. DUREZOL [Concomitant]
     Active Substance: DIFLUPREDNATE
  8. ADVIL [Concomitant]
     Active Substance: IBUPROFEN
  9. BRAFTOVI [Suspect]
     Active Substance: ENCORAFENIB
     Indication: SKIN CANCER
     Route: 048
  10. BOOST MAX PROTEIN [Concomitant]
  11. MEKTOVI [Suspect]
     Active Substance: BINIMETINIB
     Indication: SKIN CANCER
     Route: 048
  12. PREDNISONE. [Concomitant]
     Active Substance: PREDNISONE
  13. AZELASTINE. [Concomitant]
     Active Substance: AZELASTINE HYDROCHLORIDE

REACTIONS (1)
  - Hospitalisation [None]

NARRATIVE: CASE EVENT DATE: 20200309
